FAERS Safety Report 13334869 (Version 1)
Quarter: 2017Q1

REPORT INFORMATION
  Report Type: Spontaneous
  Country: RO (occurrence: RO)
  Receive Date: 20170315
  Receipt Date: 20170315
  Transmission Date: 20170428
  Serious: Yes (Hospitalization)
  Sender: FDA-Public Use
  Company Number: RO-AUROBINDO-AUR-APL-2017-30826

PATIENT
  Age: 16 Year
  Sex: Male

DRUGS (1)
  1. AMOXICILLIN+CLAVULANIC ACID [Suspect]
     Active Substance: AMOXICILLIN\CLAVULANIC ACID
     Dosage: 1 G, TWO TIMES A DAY
     Route: 065

REACTIONS (8)
  - Dark circles under eyes [Recovered/Resolved]
  - Respiratory rate increased [Recovered/Resolved]
  - Pleurisy [Recovered/Resolved]
  - Hepatocellular injury [Recovered/Resolved]
  - Mental status changes [Recovered/Resolved]
  - Hyperaemia [Recovered/Resolved]
  - Pyrexia [Recovered/Resolved]
  - Pneumonia [Recovered/Resolved]
